FAERS Safety Report 5378914-8 (Version None)
Quarter: 2007Q3

REPORT INFORMATION
  Report Type: 
  Country: None (occurrence: None)
  Receive Date: 20070705
  Receipt Date: 20070626
  Transmission Date: 20080115
  Serious: Yes (Hospitalization)
  Sender: FDA-Public Use
  Company Number: US-AMGEN-US231358

PATIENT
  Sex: Female

DRUGS (12)
  1. PANITUMUMAB [Suspect]
     Indication: COLORECTAL CANCER
     Route: 042
     Dates: start: 20070525
  2. FLUOROURACIL [Suspect]
     Route: 065
  3. IRINOTECAN HCL [Suspect]
     Route: 065
  4. FOLINIC ACID [Suspect]
     Route: 065
  5. SYNTHROID [Concomitant]
     Route: 065
  6. AMIODARONE [Concomitant]
     Route: 065
  7. QUESTRAN [Concomitant]
     Route: 065
  8. PERCOCET [Concomitant]
     Route: 065
  9. POTASSIUM CHLORIDE [Concomitant]
     Route: 065
  10. SULFACETAMIDE [Concomitant]
     Route: 047
  11. TYLENOL [Concomitant]
     Route: 065
  12. MAGNESIUM OXIDE [Concomitant]
     Route: 065

REACTIONS (2)
  - PANCYTOPENIA [None]
  - PYREXIA [None]
